FAERS Safety Report 19399835 (Version 2)
Quarter: 2021Q2

REPORT INFORMATION
  Report Type: Spontaneous
  Country: US (occurrence: US)
  Receive Date: 20210610
  Receipt Date: 20210614
  Transmission Date: 20210717
  Serious: No
  Sender: FDA-Public Use
  Company Number: US-PFIZER INC-2021299347

PATIENT

DRUGS (2)
  1. TOZINAMERAN. [Suspect]
     Active Substance: TOZINAMERAN
     Indication: COVID-19 IMMUNISATION
     Dosage: 1ST DOSE, SINGLE
     Dates: start: 202102, end: 202102
  2. GABAPENTIN. [Suspect]
     Active Substance: GABAPENTIN
     Dosage: 2100 MG, DAILY

REACTIONS (4)
  - Neuralgia [Unknown]
  - Mydriasis [Unknown]
  - Photophobia [Unknown]
  - Condition aggravated [Unknown]

NARRATIVE: CASE EVENT DATE: 202102
